FAERS Safety Report 22944657 (Version 3)
Quarter: 2023Q4

REPORT INFORMATION
  Report Type: Spontaneous
  Country: US (occurrence: US)
  Receive Date: 20230914
  Receipt Date: 20231016
  Transmission Date: 20240110
  Serious: No
  Sender: FDA-Public Use
  Company Number: US-SA-SAC20230908000440

PATIENT
  Age: 17 Year
  Sex: Female

DRUGS (1)
  1. DUPIXENT [Suspect]
     Active Substance: DUPILUMAB
     Indication: Dermatitis atopic
     Dosage: 300 MG, QOW
     Route: 058
     Dates: start: 20230609

REACTIONS (5)
  - Injection site urticaria [Unknown]
  - Myalgia [Unknown]
  - Urticaria [Unknown]
  - Arthralgia [Unknown]
  - Injection site pain [Unknown]

NARRATIVE: CASE EVENT DATE: 20230101
